FAERS Safety Report 22153616 (Version 1)
Quarter: 2023Q1

REPORT INFORMATION
  Report Type: Spontaneous
  Country: US (occurrence: US)
  Receive Date: 20230330
  Receipt Date: 20230330
  Transmission Date: 20230418
  Serious: No
  Sender: FDA-Public Use
  Company Number: US-ELI_LILLY_AND_COMPANY-US202303013936

PATIENT
  Age: 70 Year
  Sex: Female

DRUGS (1)
  1. MOUNJARO [Suspect]
     Active Substance: TIRZEPATIDE
     Indication: Type 2 diabetes mellitus
     Dosage: 5 MG, UNKNOWN
     Route: 065
     Dates: start: 20230323

REACTIONS (5)
  - Irritable bowel syndrome [Unknown]
  - Gastrooesophageal reflux disease [Unknown]
  - Flatulence [Unknown]
  - Dyspepsia [Unknown]
  - Eructation [Unknown]

NARRATIVE: CASE EVENT DATE: 20230323
